FAERS Safety Report 7689692-1 (Version None)
Quarter: 2011Q3

REPORT INFORMATION
  Report Type: 
  Country: None (occurrence: None)
  Receive Date: 20110817
  Receipt Date: 20110809
  Transmission Date: 20111222
  Serious: Yes (Hospitalization)
  Sender: FDA-Public Use
  Company Number: US-B.I. PHARMACEUTICALS,INC./RIDGEFIELD-2011-BP-16649BP

PATIENT
  Age: 73 Year
  Sex: Female
  Weight: 66.22 kg

DRUGS (3)
  1. ATENOLOL [Concomitant]
     Indication: ATRIAL FIBRILLATION
     Dosage: 100 MG
     Dates: start: 20110610
  2. PRADAXA [Suspect]
     Indication: ATRIAL FIBRILLATION
     Dosage: 300 MG
     Route: 048
     Dates: start: 20110617, end: 20110621
  3. DIGOXIN [Concomitant]
     Dosage: 125 MCG
     Dates: start: 20110617

REACTIONS (2)
  - CHOLELITHIASIS [None]
  - RECTAL HAEMORRHAGE [None]
